FAERS Safety Report 11583467 (Version 5)
Quarter: 2016Q3

REPORT INFORMATION
  Report Type: Spontaneous
  Country: US (occurrence: US)
  Receive Date: 20151001
  Receipt Date: 20160907
  Transmission Date: 20161109
  Serious: Yes (Other)
  Sender: FDA-Public Use
  Company Number: US-ACORDA-ACO_109686_2015

PATIENT
  Sex: Male
  Weight: 61.22 kg

DRUGS (7)
  1. AMPYRA [Suspect]
     Active Substance: DALFAMPRIDINE
     Indication: GAIT DISTURBANCE
     Dosage: 10 MG, BID
     Route: 048
     Dates: start: 20130802
  2. IBUPROFEN. [Concomitant]
     Active Substance: IBUPROFEN
     Indication: PRODUCT USED FOR UNKNOWN INDICATION
     Dosage: 600 MG, UNK
     Route: 065
  3. AVONEX [Suspect]
     Active Substance: INTERFERON BETA-1A
     Dosage: 30 ?G, ONCE WEEKLY
     Route: 065
     Dates: start: 20150304
  4. MECLIZINE HCL [Concomitant]
     Active Substance: MECLIZINE HYDROCHLORIDE
     Indication: DIZZINESS
     Dosage: UNK, DAILY
     Route: 065
     Dates: start: 2013
  5. VITAMIN D [Concomitant]
     Active Substance: CHOLECALCIFEROL
     Indication: PRODUCT USED FOR UNKNOWN INDICATION
     Dosage: UNK
     Route: 065
     Dates: start: 2014
  6. AVONEX [Suspect]
     Active Substance: INTERFERON BETA-1A
     Dosage: 15 ?G, UNK
  7. AVONEX [Suspect]
     Active Substance: INTERFERON BETA-1A
     Indication: MULTIPLE SCLEROSIS
     Dosage: 30 ?G, WEEKLY ON FRIDAYS
     Route: 065
     Dates: start: 201309, end: 201412

REACTIONS (23)
  - Paralysis [Recovering/Resolving]
  - Dyspnoea [Unknown]
  - Malaise [Unknown]
  - Headache [Unknown]
  - Quadriplegia [Unknown]
  - Hypoaesthesia [Not Recovered/Not Resolved]
  - Fatigue [Unknown]
  - Ill-defined disorder [Unknown]
  - Musculoskeletal discomfort [Unknown]
  - Back pain [Unknown]
  - Anxiety [Unknown]
  - Asthenia [Not Recovered/Not Resolved]
  - Multiple sclerosis [Unknown]
  - Gastrointestinal haemorrhage [Unknown]
  - Dysstasia [Not Recovered/Not Resolved]
  - Pain [Recovering/Resolving]
  - Feeling abnormal [Unknown]
  - Therapeutic response unexpected [Unknown]
  - Fine motor skill dysfunction [Unknown]
  - Memory impairment [Unknown]
  - Musculoskeletal stiffness [Unknown]
  - Fall [Unknown]
  - Musculoskeletal pain [Unknown]
